FAERS Safety Report 24194960 (Version 3)
Quarter: 2025Q2

REPORT INFORMATION
  Report Type: Report from Study
  Country: AR (occurrence: AR)
  Receive Date: 20240809
  Receipt Date: 20250507
  Transmission Date: 20250716
  Serious: Yes (Death, Hospitalization, Other)
  Sender: NOVARTIS
  Company Number: AR-002147023-PHHY2017AR100969

PATIENT
  Age: 83 Year
  Sex: Male

DRUGS (2)
  1. COSENTYX [Suspect]
     Active Substance: SECUKINUMAB
     Indication: Psoriasis
     Dosage: 300 MG, QMO
     Route: 058
     Dates: start: 20120101
  2. COSENTYX [Suspect]
     Active Substance: SECUKINUMAB
     Dosage: 300 MG, QMO (STARTED 4 YEARS AGO)
     Route: 065

REACTIONS (12)
  - Multiple organ dysfunction syndrome [Fatal]
  - Pneumonia [Unknown]
  - Cataract [Recovering/Resolving]
  - Carpal tunnel syndrome [Unknown]
  - Pain in extremity [Unknown]
  - Inflammation [Unknown]
  - Influenza [Not Recovered/Not Resolved]
  - Bronchitis [Unknown]
  - Skin lesion [Unknown]
  - Nasopharyngitis [Unknown]
  - Pyrexia [Unknown]
  - Cough [Unknown]

NARRATIVE: CASE EVENT DATE: 20220423
